FAERS Safety Report 4270551-1 (Version None)
Quarter: 2004Q1

REPORT INFORMATION
  Report Type: 
  Country: None (occurrence: None)
  Receive Date: 20040113
  Receipt Date: 20040113
  Transmission Date: 20041129
  Serious: Yes (Disabling)
  Sender: FDA-Public Use
  Company Number: None

PATIENT
  Age: 56 Year
  Sex: Male

DRUGS (2)
  1. PHENYTOIN [Suspect]
     Indication: CONVULSION
     Dosage: 300 MG DAILY INTRAVENOUS
     Route: 042
     Dates: start: 20031211, end: 20031228
  2. PHENYTOIN [Suspect]
     Indication: HAEMORRHAGE
     Dosage: 300 MG DAILY INTRAVENOUS
     Route: 042
     Dates: start: 20031211, end: 20031228

REACTIONS (2)
  - STEVENS-JOHNSON SYNDROME [None]
  - TOXIC EPIDERMAL NECROLYSIS [None]
